FAERS Safety Report 7242674-6 (Version None)
Quarter: 2011Q1

REPORT INFORMATION
  Report Type: 
  Country: None (occurrence: None)
  Receive Date: 20110114
  Receipt Date: 20110106
  Transmission Date: 20110831
  Serious: Yes (Other)
  Sender: FDA-Public Use
  Company Number: 8043297

PATIENT
  Sex: Male
  Weight: 12.3 kg

DRUGS (5)
  1. KEPPRA [Suspect]
     Indication: CONVULSION
     Dosage: 750 MG BID TRANSPLACENTAL, 750 MG BID TRANSMAMMARY
     Route: 064
     Dates: start: 20070221, end: 20071205
  2. CLARITIN [Concomitant]
  3. FOLIC ACID [Concomitant]
  4. PEPCID [Concomitant]
  5. MULTI-VITAMINS [Concomitant]

REACTIONS (11)
  - VOMITING [None]
  - UMBILICAL CORD AROUND NECK [None]
  - FREQUENT BOWEL MOVEMENTS [None]
  - JAUNDICE NEONATAL [None]
  - PETECHIAE [None]
  - MATERNAL DRUGS AFFECTING FOETUS [None]
  - BRADYCARDIA FOETAL [None]
  - WEIGHT GAIN POOR [None]
  - DRUG EXPOSURE VIA BREAST MILK [None]
  - DERMATITIS DIAPER [None]
  - UMBILICAL HERNIA [None]
